FAERS Safety Report 5806034-4 (Version None)
Quarter: 2008Q3

REPORT INFORMATION
  Report Type: 
  Country: None (occurrence: None)
  Receive Date: 20080710
  Receipt Date: 20080708
  Transmission Date: 20090109
  Serious: Yes (Death)
  Sender: FDA-Public Use
  Company Number: US-ASTRAZENECA-2004UW05503

PATIENT
  Age: 92 Year
  Sex: Female
  Weight: 46.8 kg

DRUGS (8)
  1. IRESSA [Suspect]
     Indication: NON-SMALL CELL LUNG CANCER
     Route: 048
     Dates: start: 20010209
  2. IRESSA [Suspect]
     Indication: ADENOCARCINOMA
     Route: 048
     Dates: start: 20010209
  3. FOSAMAX [Concomitant]
     Dates: start: 19990811
  4. VITAMIN D [Concomitant]
  5. GLYBURIDE [Concomitant]
     Route: 048
  6. GLYBURIDE [Concomitant]
     Dates: start: 20031001
  7. FORTEO [Concomitant]
  8. GUAIFENESIN [Concomitant]
     Dates: start: 20040201

REACTIONS (7)
  - BLOOD GLUCOSE DECREASED [None]
  - BLOOD GLUCOSE INCREASED [None]
  - BONE DENSITY DECREASED [None]
  - DEATH [None]
  - FLATULENCE [None]
  - LOWER RESPIRATORY TRACT INFECTION [None]
  - OROPHARYNGEAL PAIN [None]
